FAERS Safety Report 6823480-0 (Version None)
Quarter: 2010Q3

REPORT INFORMATION
  Report Type: 
  Country: None (occurrence: None)
  Receive Date: 20100708
  Receipt Date: 20100705
  Transmission Date: 20110219
  Serious: Yes (Death)
  Sender: FDA-Public Use
  Company Number: PHHY2010AU43292

PATIENT

DRUGS (2)
  1. AFINITOR [Suspect]
     Indication: RENAL CELL CARCINOMA
     Dosage: 10 MG,
     Dates: start: 20100305
  2. AFINITOR [Suspect]
     Dosage: 5 MG, UNK
     Dates: start: 20100401

REACTIONS (1)
  - DEATH [None]
